FAERS Safety Report 8257936-3 (Version None)
Quarter: 2012Q2

REPORT INFORMATION
  Report Type: 
  Country: None (occurrence: None)
  Receive Date: 20120404
  Receipt Date: 20120330
  Transmission Date: 20120825
  Serious: Yes (Disabling)
  Sender: FDA-Public Use
  Company Number: GB-ACCORD-012424

PATIENT
  Age: 81 Year
  Sex: Male
  Weight: 81 kg

DRUGS (7)
  1. ISPAGHULA HUSK [Concomitant]
     Dates: start: 20111121, end: 20111219
  2. WARFARIN SODIUM [Concomitant]
     Dates: start: 20111020
  3. DOXAZOSIN MESYLATE [Concomitant]
     Dates: start: 20111020
  4. MEBEVERINE HYDROCHLORIDE [Concomitant]
     Dates: start: 20111212, end: 20120109
  5. VISCOTEARS [Concomitant]
     Dates: start: 20111020
  6. FINASTERIDE [Suspect]
     Dates: start: 20111116
  7. SOTALOL HCL [Concomitant]
     Dates: start: 20111020

REACTIONS (2)
  - URINARY RETENTION [None]
  - URINE FLOW DECREASED [None]
